FAERS Safety Report 5693633-6 (Version None)
Quarter: 2008Q2

REPORT INFORMATION
  Report Type: 
  Country: None (occurrence: None)
  Receive Date: 20080403
  Receipt Date: 20080331
  Transmission Date: 20081010
  Serious: Yes (Life-Threatening, Hospitalization)
  Sender: FDA-Public Use
  Company Number: JP-WYE-H02670508

PATIENT
  Sex: Female

DRUGS (14)
  1. OSTELUC [Suspect]
     Indication: FOOT FRACTURE
     Route: 048
     Dates: start: 20061121, end: 20060101
  2. EUGLUCON [Concomitant]
  3. LIPITOR [Concomitant]
  4. MAGNESIUM OXIDE [Concomitant]
  5. GASTROM [Concomitant]
  6. MERISLON [Concomitant]
  7. AKINETON [Concomitant]
  8. PANALDINE [Concomitant]
  9. ACTOS [Concomitant]
  10. LASIX [Concomitant]
  11. PILSICAINIDE HYDROCHLORIDE [Concomitant]
  12. SOLON [Concomitant]
     Route: 048
     Dates: start: 20060919, end: 20061120
  13. SOLON [Concomitant]
     Route: 048
     Dates: start: 20061121
  14. KINEDAK [Concomitant]

REACTIONS (1)
  - STEVENS-JOHNSON SYNDROME [None]
